FAERS Safety Report 9643179 (Version 1)
Quarter: 2013Q4

REPORT INFORMATION
  Report Type: Spontaneous
  Country: US (occurrence: None)
  Receive Date: 20131022
  Receipt Date: 20131022
  Transmission Date: 20140711
  Serious: Yes (Other)
  Sender: FDA-Public Use
  Company Number: 13-04288

PATIENT
  Age: 27 Year
  Sex: Male

DRUGS (1)
  1. ASTHMANEFRIN INHALATION SOLUTION, 2.25% [Suspect]
     Indication: ASTHMA
     Dosage: 1-3 INHALATIONS 054
     Route: 055

REACTIONS (1)
  - Haemoptysis [None]
